FAERS Safety Report 9577479 (Version 2)
Quarter: 2013Q4

REPORT INFORMATION
  Report Type: Spontaneous
  Country: US (occurrence: US)
  Receive Date: 20131001
  Receipt Date: 20131001
  Transmission Date: 20140711
  Serious: No
  Sender: FDA-Public Use
  Company Number: US-AMGEN-USASP2013001537

PATIENT
  Age: 59 Year
  Sex: Female
  Weight: 100.68 kg

DRUGS (2)
  1. ENBREL [Suspect]
     Indication: RHEUMATOID ARTHRITIS
     Dosage: 50 MG, QWK
     Dates: start: 2002
  2. HUMIRA [Concomitant]
     Dosage: UNK

REACTIONS (1)
  - Arthralgia [Recovered/Resolved]
